FAERS Safety Report 14215065 (Version 1)
Quarter: 2017Q4

REPORT INFORMATION
  Report Type: Spontaneous
  Country: US (occurrence: US)
  Receive Date: 20171122
  Receipt Date: 20171122
  Transmission Date: 20180321
  Serious: No
  Sender: FDA-Public Use
  Company Number: US-JNJFOC-20171017318

PATIENT

DRUGS (2)
  1. NIZORAL A-D [Suspect]
     Active Substance: KETOCONAZOLE
     Indication: DANDRUFF
     Route: 065
  2. NIZORAL A-D [Suspect]
     Active Substance: KETOCONAZOLE
     Indication: PRURITUS
     Route: 065

REACTIONS (2)
  - Paraesthesia [Unknown]
  - Product solubility abnormal [Unknown]
